FAERS Safety Report 17127020 (Version 1)
Quarter: 2019Q4

REPORT INFORMATION
  Report Type: Spontaneous
  Country: SE (occurrence: SE)
  Receive Date: 20191209
  Receipt Date: 20191209
  Transmission Date: 20200122
  Serious: Yes (Hospitalization)
  Sender: FDA-Public Use
  Company Number: SE-TEVA-2019-SE-1148100

PATIENT
  Age: 37 Year
  Sex: Female

DRUGS (5)
  1. STESOLID [Suspect]
     Active Substance: DIAZEPAM
     Dosage: 20 MG STESOLID
     Route: 048
     Dates: start: 20180424, end: 20180424
  2. ALVEDON [Suspect]
     Active Substance: ACETAMINOPHEN
     Dosage: 2 ALVEDON
     Route: 048
     Dates: start: 20180424, end: 20180424
  3. PROPAVAN [Suspect]
     Active Substance: PROPIOMAZINE
     Dosage: 2 ST. PROPAVAN 25 MG
     Route: 048
     Dates: start: 20180424, end: 20180424
  4. LERGIGAN [PROMETHAZINE HYDROCHLORIDE] [Suspect]
     Active Substance: PROMETHAZINE HYDROCHLORIDE
     Dosage: 90 ST LERGIGAN 25 MG
     Route: 048
     Dates: start: 20180424, end: 20180424
  5. CIRCADIN [Suspect]
     Active Substance: MELATONIN
     Dosage: 2 ST. CIRCADIN 2 MG
     Route: 048
     Dates: start: 20180424, end: 20180424

REACTIONS (2)
  - Intentional self-injury [Unknown]
  - Intentional overdose [Unknown]

NARRATIVE: CASE EVENT DATE: 20180424
